FAERS Safety Report 6071093-3 (Version None)
Quarter: 2009Q1

REPORT INFORMATION
  Report Type: 
  Country: None (occurrence: None)
  Receive Date: 20090209
  Receipt Date: 20081121
  Transmission Date: 20090719
  Serious: Yes (Disabling)
  Sender: FDA-Public Use
  Company Number: A0757649A

PATIENT
  Sex: Female

DRUGS (2)
  1. PAXIL CR [Suspect]
     Dosage: 25MG PER DAY
     Route: 048
  2. TRAZODONE HCL [Concomitant]

REACTIONS (2)
  - FORMICATION [None]
  - WITHDRAWAL SYNDROME [None]
